FAERS Safety Report 25626029 (Version 1)
Quarter: 2025Q3

REPORT INFORMATION
  Report Type: Spontaneous
  Country: BR (occurrence: BR)
  Receive Date: 20250731
  Receipt Date: 20250731
  Transmission Date: 20251021
  Serious: Yes (Other)
  Sender: NOVO NORDISK
  Company Number: BR-NOVOPROD-1485971

PATIENT
  Age: 42 Year
  Sex: Male
  Weight: 100 kg

DRUGS (12)
  1. ROSUVASTATIN [Concomitant]
     Active Substance: ROSUVASTATIN
     Indication: Product used for unknown indication
  2. PITAVASTATIN [Concomitant]
     Active Substance: PITAVASTATIN
     Indication: Product used for unknown indication
  3. WEGOVY [Suspect]
     Active Substance: SEMAGLUTIDE
     Dates: start: 202411
  4. WEGOVY [Suspect]
     Active Substance: SEMAGLUTIDE
  5. WEGOVY [Suspect]
     Active Substance: SEMAGLUTIDE
     Dates: start: 202501, end: 202503
  6. WEGOVY [Suspect]
     Active Substance: SEMAGLUTIDE
     Dates: start: 202503
  7. WEGOVY [Suspect]
     Active Substance: SEMAGLUTIDE
  8. WEGOVY [Suspect]
     Active Substance: SEMAGLUTIDE
  9. WEGOVY [Suspect]
     Active Substance: SEMAGLUTIDE
     Dates: start: 202505
  10. WEGOVY [Suspect]
     Active Substance: SEMAGLUTIDE
     Dates: start: 202410
  11. WEGOVY [Suspect]
     Active Substance: SEMAGLUTIDE
     Indication: Product used for unknown indication
  12. WEGOVY [Suspect]
     Active Substance: SEMAGLUTIDE
     Dates: start: 202412

REACTIONS (4)
  - Hernia repair [Recovered/Resolved]
  - Arteriosclerosis [Unknown]
  - Myalgia [Unknown]
  - Intentional dose omission [Unknown]

NARRATIVE: CASE EVENT DATE: 20250301
